FAERS Safety Report 6681589-9 (Version None)
Quarter: 2010Q2

REPORT INFORMATION
  Report Type: 
  Country: None (occurrence: None)
  Receive Date: 20100414
  Receipt Date: 20100408
  Transmission Date: 20101027
  Serious: Yes (Other)
  Sender: FDA-Public Use
  Company Number: 10541936

PATIENT
  Age: 48 Year
  Sex: Male

DRUGS (7)
  1. ZERIT [Suspect]
     Indication: HIV INFECTION
     Route: 048
     Dates: start: 19990707
  2. INDINAVIR [Suspect]
     Indication: HIV INFECTION
     Route: 048
     Dates: start: 19990707
  3. LAMIVUDINE [Suspect]
     Indication: HIV INFECTION
     Dosage: ANOTHER BRAND IS 3-TC
     Route: 048
     Dates: start: 20000707
  4. PROLEUKIN [Suspect]
     Indication: HIV INFECTION
     Route: 058
     Dates: start: 20000609, end: 20000613
  5. PRILOSEC [Concomitant]
  6. ASPIRIN [Concomitant]
  7. ADVIL [Concomitant]

REACTIONS (5)
  - CARDIOMYOPATHY [None]
  - INFLUENZA LIKE ILLNESS [None]
  - NAUSEA [None]
  - OVERDOSE [None]
  - VOMITING [None]
